FAERS Safety Report 10791366 (Version 1)
Quarter: 2015Q1

REPORT INFORMATION
  Report Type: Spontaneous
  Country: US (occurrence: US)
  Receive Date: 20150213
  Receipt Date: 20150213
  Transmission Date: 20150721
  Serious: Yes (Other)
  Sender: FDA-Public Use
  Company Number: US-AMGEN-USASP2015012099

PATIENT
  Sex: Female

DRUGS (2)
  1. HERCEPTIN [Interacting]
     Active Substance: TRASTUZUMAB
     Indication: BREAST CANCER
     Route: 065
  2. PROLIA [Suspect]
     Active Substance: DENOSUMAB
     Indication: PRODUCT USED FOR UNKNOWN INDICATION
     Dosage: UNK
     Route: 065
     Dates: start: 20150203

REACTIONS (8)
  - Drug interaction [Unknown]
  - Arthralgia [Unknown]
  - Musculoskeletal pain [Unknown]
  - Dysstasia [Unknown]
  - Breast cancer [Unknown]
  - Pain in extremity [Unknown]
  - Joint range of motion decreased [Unknown]
  - Gait disturbance [Unknown]

NARRATIVE: CASE EVENT DATE: 201502
